FAERS Safety Report 7794862-8 (Version None)
Quarter: 2011Q4

REPORT INFORMATION
  Report Type: 
  Country: None (occurrence: None)
  Receive Date: 20111004
  Receipt Date: 20110923
  Transmission Date: 20120403
  Serious: Yes (Other)
  Sender: FDA-Public Use
  Company Number: PHFR2011GB05526

PATIENT
  Age: 69 Year
  Sex: Male

DRUGS (1)
  1. INDACATEROL [Suspect]

REACTIONS (1)
  - EXTRASYSTOLES [None]
